FAERS Safety Report 6377406-7 (Version None)
Quarter: 2009Q3

REPORT INFORMATION
  Report Type: 
  Country: None (occurrence: None)
  Receive Date: 20090923
  Receipt Date: 20090923
  Transmission Date: 20100115
  Serious: Yes (Life-Threatening, Hospitalization)
  Sender: FDA-Public Use
  Company Number: None

PATIENT
  Age: 39 Year
  Sex: Male
  Weight: 80.9 kg

DRUGS (10)
  1. AMPICILLIN [Suspect]
     Indication: BACTERAEMIA
     Dosage: 1 G IV Q 8 HRS
     Route: 042
     Dates: start: 20090818, end: 20090819
  2. HEPARIN [Concomitant]
  3. AMLODIPINE [Concomitant]
  4. CLOZAPINE [Concomitant]
  5. LORAZEPAM [Concomitant]
  6. FENTANYL [Concomitant]
  7. HALOPERIDOL [Concomitant]
  8. SEVELAMER [Concomitant]
  9. SULFAMETHOXAZOLE AND TRIMETHOPRIM [Concomitant]
  10. VANCOMYCIN [Concomitant]

REACTIONS (1)
  - ANGIOEDEMA [None]
